FAERS Safety Report 7396057-9 (Version None)
Quarter: 2011Q2

REPORT INFORMATION
  Report Type: 
  Country: None (occurrence: None)
  Receive Date: 20110406
  Receipt Date: 20110322
  Transmission Date: 20111010
  Serious: Yes (Hospitalization, Other)
  Sender: FDA-Public Use
  Company Number: US-JNJFOC-20110309102

PATIENT
  Age: 50 Year
  Sex: Male

DRUGS (5)
  1. AMLODIPINE [Concomitant]
  2. DOXYCYCLINE [Concomitant]
     Indication: FURUNCLE
  3. METOPROLOL [Concomitant]
  4. SIMVASTATIN [Suspect]
     Indication: PRODUCT USED FOR UNKNOWN INDICATION
  5. INFLIXIMAB, RECOMBINANT [Suspect]
     Indication: PSORIATIC ARTHROPATHY
     Dosage: FOR 3 YEARS; MOST RECENT DOSE 4 WEEKS PRIOR TO EVENT
     Route: 042

REACTIONS (5)
  - MULTI-ORGAN DISORDER [None]
  - BLASTOMYCOSIS [None]
  - SQUAMOUS CELL CARCINOMA [None]
  - RHABDOMYOLYSIS [None]
  - FURUNCLE [None]
